FAERS Safety Report 8814779 (Version 1)
Quarter: 2012Q4

REPORT INFORMATION
  Report Type: Spontaneous
  Country: None (occurrence: None)
  Receive Date: 20120926
  Receipt Date: 20120926
  Transmission Date: 20130627
  Serious: Yes (Hospitalization, Other)
  Sender: FDA-Public Use
  Company Number: AUR-APL-2012-04034

PATIENT
  Age: 52 Year
  Sex: Male

DRUGS (2)
  1. SIMVASTATIN (SIMVASTATIN) [Suspect]
     Indication: DYSLIPIDAEMIA
     Dosage: 40 mg (40 mg, 1 in 1 D), Oral
     Route: 048
     Dates: start: 20030101, end: 20120903
  2. SANDIMMUN (CICLOSPORIN) INFUSION [Suspect]
     Indication: IMMUNOSUPPRESSANT DRUG THERAPY
     Dosage: 150 mg (150 mg, 1 in 1 D), Oral
     Route: 048
     Dates: start: 19950421, end: 20120905

REACTIONS (6)
  - Renal failure acute [None]
  - Rhabdomyolysis [None]
  - Drug interaction [None]
  - Dehydration [None]
  - Erectile dysfunction [None]
  - Drug level increased [None]
